FAERS Safety Report 20640706 (Version 3)
Quarter: 2022Q1

REPORT INFORMATION
  Report Type: Spontaneous
  Country: US (occurrence: US)
  Receive Date: 20220327
  Receipt Date: 20220329
  Transmission Date: 20220423
  Serious: Yes (Other)
  Sender: FDA-Public Use
  Company Number: US-SA-SAC20220323000733

PATIENT
  Sex: Male

DRUGS (1)
  1. XYZAL ALLERGY 24HR [Suspect]
     Active Substance: LEVOCETIRIZINE DIHYDROCHLORIDE
     Dosage: UNK

REACTIONS (4)
  - Hepatic enzyme increased [Not Recovered/Not Resolved]
  - Liver disorder [Unknown]
  - Unevaluable event [Not Recovered/Not Resolved]
  - Adverse drug reaction [Not Recovered/Not Resolved]
